FAERS Safety Report 10718454 (Version 3)
Quarter: 2015Q1

REPORT INFORMATION
  Report Type: Report from Study
  Country: US (occurrence: US)
  Receive Date: 20150119
  Receipt Date: 20150303
  Transmission Date: 20150721
  Serious: Yes (Other)
  Sender: FDA-Public Use
  Company Number: US-BEH-2015047784

PATIENT
  Age: 32 Year
  Sex: Female

DRUGS (1)
  1. PRIVIGEN [Suspect]
     Active Substance: HUMAN IMMUNOGLOBULIN G
     Indication: THROMBOCYTOPENIA
     Dosage: FEB-2014 TO APR-2014

REACTIONS (1)
  - Splenectomy [Recovered/Resolved]

NARRATIVE: CASE EVENT DATE: 20140521
